FAERS Safety Report 5867816-6 (Version None)
Quarter: 2008Q3

REPORT INFORMATION
  Report Type: 
  Country: None (occurrence: None)
  Receive Date: 20080902
  Receipt Date: 20080818
  Transmission Date: 20090109
  Serious: Yes (Death)
  Sender: FDA-Public Use
  Company Number: JP-GENENTECH-259892

PATIENT
  Sex: Male
  Weight: 67 kg

DRUGS (4)
  1. AVASTIN [Suspect]
     Indication: COLON CANCER RECURRENT
     Dosage: 5 MG/KG, Q2W
     Route: 041
     Dates: start: 20080318, end: 20080401
  2. FLUOROURACIL [Concomitant]
     Indication: COLON CANCER
     Dosage: UNK
     Dates: start: 20080318, end: 20080401
  3. ISOVORIN [Concomitant]
     Indication: COLON CANCER
     Dosage: UNK
     Dates: start: 20080318, end: 20080401
  4. OXALIPLATIN [Concomitant]
     Indication: COLON CANCER
     Dosage: UNK
     Dates: start: 20080318, end: 20080401

REACTIONS (1)
  - DISSEMINATED INTRAVASCULAR COAGULATION [None]
